FAERS Safety Report 8582054 (Version 2)
Quarter: 2014Q1

REPORT INFORMATION
  Report Type: Report from Study
  Country: CA (occurrence: CA)
  Receive Date: 20120528
  Receipt Date: 20140110
  Transmission Date: 20141002
  Serious: Yes (Other)
  Sender: FDA-Public Use
  Company Number: PHHY2012CA009513

PATIENT
  Sex: Male

DRUGS (2)
  1. SANDOSTATIN LAR [Suspect]
     Indication: METASTATIC CARCINOID TUMOUR
     Dosage: 30 MG, QMO
     Route: 030
     Dates: start: 20090915, end: 20131203
  2. HYDROMORPHONE [Concomitant]
     Dosage: UNK UKN, UNK

REACTIONS (2)
  - Hepatic neoplasm [Unknown]
  - Musculoskeletal pain [Unknown]
